FAERS Safety Report 20224759 (Version 2)
Quarter: 2021Q4

REPORT INFORMATION
  Report Type: Spontaneous
  Country: US (occurrence: US)
  Receive Date: 20211223
  Receipt Date: 20211227
  Transmission Date: 20220303
  Serious: No
  Sender: FDA-Public Use
  Company Number: US-SA-SAC20211222000399

PATIENT
  Age: 67 Year
  Sex: Female

DRUGS (43)
  1. DUPIXENT [Suspect]
     Active Substance: DUPILUMAB
     Indication: Asthma
     Dosage: 300 MG, QOW
     Route: 058
     Dates: start: 20211014
  2. ALBUTEROL [Concomitant]
     Active Substance: ALBUTEROL
  3. ALBUTEROL [Concomitant]
     Active Substance: ALBUTEROL
  4. ALLEGRA ALLERGY [Concomitant]
     Active Substance: FEXOFENADINE HYDROCHLORIDE
  5. ALLEGRA ALLERGY [Concomitant]
     Active Substance: FEXOFENADINE HYDROCHLORIDE
  6. CALCIUM [Concomitant]
     Active Substance: CALCIUM
  7. CALCIUM [Concomitant]
     Active Substance: CALCIUM
  8. DULOXETINE [Concomitant]
     Active Substance: DULOXETINE
  9. DULOXETINE [Concomitant]
     Active Substance: DULOXETINE
  10. ESTRADIOL [Concomitant]
     Active Substance: ESTRADIOL
  11. ESTRADIOL [Concomitant]
     Active Substance: ESTRADIOL
  12. MOMETASONE FUROATE [Concomitant]
     Active Substance: MOMETASONE FUROATE
  13. GABAPENTIN [Concomitant]
     Active Substance: GABAPENTIN
  14. GABAPENTIN [Concomitant]
     Active Substance: GABAPENTIN
  15. HUMALOG [Concomitant]
     Active Substance: INSULIN LISPRO
  16. HUMALOG [Concomitant]
     Active Substance: INSULIN LISPRO
  17. JANUVIA [Concomitant]
     Active Substance: SITAGLIPTIN PHOSPHATE
  18. JANUVIA [Concomitant]
     Active Substance: SITAGLIPTIN PHOSPHATE
  19. LOSARTAN [Concomitant]
     Active Substance: LOSARTAN
  20. LOSARTAN [Concomitant]
     Active Substance: LOSARTAN
  21. METFORMIN [Concomitant]
     Active Substance: METFORMIN HYDROCHLORIDE
  22. METFORMIN [Concomitant]
     Active Substance: METFORMIN HYDROCHLORIDE
  23. MONTELUKAST [Concomitant]
     Active Substance: MONTELUKAST SODIUM
  24. MONTELUKAST [Concomitant]
     Active Substance: MONTELUKAST SODIUM
  25. VITAMIN C [Concomitant]
     Active Substance: ASCORBIC ACID
  26. VITAMIN C [Concomitant]
     Active Substance: ASCORBIC ACID
  27. PRAVASTATIN [Concomitant]
     Active Substance: PRAVASTATIN
  28. PRAVASTATIN [Concomitant]
     Active Substance: PRAVASTATIN
  29. VITAMIN D NOS [Concomitant]
     Active Substance: VITAMIN D NOS
  30. ALPHA LIPOIC [Concomitant]
  31. ALPHA LIPOIC [Concomitant]
  32. VITAMIN B12 [Concomitant]
     Active Substance: CYANOCOBALAMIN
  33. COENZYME Q10 [Concomitant]
     Active Substance: DIETARY SUPPLEMENT\UBIDECARENONE
  34. HYDROCHLOROTHIAZIDE [Concomitant]
     Active Substance: HYDROCHLOROTHIAZIDE
  35. INOSITOL [Concomitant]
     Active Substance: INOSITOL
  36. INOSITOL [Concomitant]
     Active Substance: INOSITOL
  37. MAGNESIUM [Concomitant]
     Active Substance: MAGNESIUM
  38. SYMBICORT [Concomitant]
     Active Substance: BUDESONIDE\FORMOTEROL FUMARATE DIHYDRATE
  39. SYMBICORT [Concomitant]
     Active Substance: BUDESONIDE\FORMOTEROL FUMARATE DIHYDRATE
  40. FLONASE [Concomitant]
     Active Substance: FLUTICASONE PROPIONATE
  41. MULTI VITAMIN [ASCORBIC ACID;FOLIC ACID;NICOTINIC ACID;PYRIDOXINE HYDR [Concomitant]
  42. VITAMIN D NOS [Concomitant]
     Active Substance: VITAMIN D NOS
  43. HYDROCORTISONE [Concomitant]
     Active Substance: HYDROCORTISONE

REACTIONS (3)
  - Oral herpes [Not Recovered/Not Resolved]
  - Mouth ulceration [Not Recovered/Not Resolved]
  - Drug ineffective [Unknown]

NARRATIVE: CASE EVENT DATE: 20211214
